FAERS Safety Report 6309128-2 (Version None)
Quarter: 2009Q3

REPORT INFORMATION
  Report Type: 
  Country: None (occurrence: None)
  Receive Date: 20090811
  Receipt Date: 20080312
  Transmission Date: 20100115
  Serious: Yes (Death, Life-Threatening, Other)
  Sender: FDA-Public Use
  Company Number: 2008US000761

PATIENT
  Age: 3 Month
  Sex: Male

DRUGS (4)
  1. AMBISOME [Suspect]
     Indication: DRUG USE FOR UNKNOWN INDICATION
  2. AMPHOTERICIN B [Suspect]
     Indication: DRUG USE FOR UNKNOWN INDICATION
     Dosage: 5 MG/KG,UID/QD
  3. TEICOPLANIN [Concomitant]
  4. CEFTAZIDIME [Concomitant]

REACTIONS (14)
  - BLOOD LACTATE DEHYDROGENASE INCREASED [None]
  - BRADYCARDIA [None]
  - CARDIOGENIC SHOCK [None]
  - GAMMA-GLUTAMYLTRANSFERASE INCREASED [None]
  - HEPATIC NECROSIS [None]
  - HYPERKALAEMIA [None]
  - INTESTINAL INFARCTION [None]
  - LIVER INJURY [None]
  - MEDICATION ERROR [None]
  - METABOLIC ACIDOSIS [None]
  - MULTI-ORGAN FAILURE [None]
  - MYOCARDIAL INFARCTION [None]
  - RENAL INFARCT [None]
  - SPLENIC INFARCTION [None]
